FAERS Safety Report 14580410 (Version 1)
Quarter: 2018Q1

REPORT INFORMATION
  Report Type: Spontaneous
  Country: FR (occurrence: FR)
  Receive Date: 20180228
  Receipt Date: 20180228
  Transmission Date: 20180509
  Serious: Yes (Hospitalization)
  Sender: FDA-Public Use
  Company Number: FR-ABBVIE-18S-056-2266861-00

PATIENT
  Age: 39 Year
  Sex: Female

DRUGS (3)
  1. PREZISTA [Suspect]
     Active Substance: DARUNAVIR ETHANOLATE
     Indication: HIV INFECTION
     Dosage: UNSPECIFIED
     Route: 048
     Dates: start: 20171010, end: 20171018
  2. TRUVADA [Suspect]
     Active Substance: EMTRICITABINE\TENOFOVIR DISOPROXIL FUMARATE
     Indication: HIV INFECTION
     Dosage: 200 MG/245 MG, COATED TABLET
     Route: 048
     Dates: start: 20170919, end: 20171018
  3. NORVIR [Suspect]
     Active Substance: RITONAVIR
     Indication: HIV INFECTION
     Dosage: UNSPECIFIED
     Route: 048
     Dates: start: 20171010, end: 20171018

REACTIONS (2)
  - Rash [Recovered/Resolved]
  - Enanthema [Recovered/Resolved]

NARRATIVE: CASE EVENT DATE: 20171018
